FAERS Safety Report 4923617-4 (Version None)
Quarter: 2006Q1

REPORT INFORMATION
  Report Type: 
  Country: None (occurrence: None)
  Receive Date: 20060227
  Receipt Date: 20041105
  Transmission Date: 20060701
  Serious: Yes (Hospitalization, Other)
  Sender: FDA-Public Use
  Company Number: US-MERCK-0411USA01394

PATIENT
  Age: 64 Year
  Sex: Female
  Weight: 82 kg

DRUGS (19)
  1. VIOXX [Suspect]
     Indication: ARTHROPATHY
     Route: 048
     Dates: start: 20000101, end: 20040101
  2. VIOXX [Suspect]
     Indication: ARTHRALGIA
     Route: 048
     Dates: start: 20000101, end: 20040101
  3. COREG [Concomitant]
     Route: 065
  4. COZAAR [Concomitant]
     Route: 065
  5. ASPIRIN [Concomitant]
     Route: 065
  6. PROTONIX [Concomitant]
     Route: 065
  7. NOVOLIN 70/30 [Concomitant]
     Route: 065
  8. DULCOLAX [Concomitant]
     Route: 065
  9. MILK OF MAGNESIA TAB [Concomitant]
     Route: 065
  10. PHENERGAN [Concomitant]
     Route: 065
  11. DARVOCET-N 50 [Concomitant]
     Route: 065
  12. TIMENTIN [Concomitant]
     Route: 065
  13. ASCORBIC ACID [Concomitant]
     Route: 065
  14. COUMADIN [Concomitant]
     Route: 065
  15. PRAVACHOL [Concomitant]
     Route: 065
  16. HEMOCYTE [Concomitant]
     Route: 065
  17. PERI-COLACE [Concomitant]
     Route: 065
  18. MAALOX FAST BLOCKER [Concomitant]
     Route: 065
  19. LACTULOSE [Concomitant]
     Route: 065

REACTIONS (6)
  - CARDIAC FAILURE CONGESTIVE [None]
  - CATARACT [None]
  - CEREBROVASCULAR ACCIDENT [None]
  - FALL [None]
  - LACUNAR INFARCTION [None]
  - LEUKOCYTOSIS [None]
